FAERS Safety Report 23973516 (Version 2)
Quarter: 2024Q3

REPORT INFORMATION
  Report Type: Report from Study
  Country: US (occurrence: US)
  Receive Date: 20240613
  Receipt Date: 20240710
  Transmission Date: 20241017
  Serious: Yes (Other)
  Sender: UPSHER-SMITH
  Company Number: US-UPSHER-SMITH LABORATORIES, LLC-2024USL00453

PATIENT
  Sex: Male

DRUGS (6)
  1. ISOTRETINOIN [Suspect]
     Active Substance: ISOTRETINOIN
     Indication: Acne
     Dosage: 40 MG, 1X/DAY (DOSE LOWERED)
     Dates: start: 20240501, end: 20240508
  2. ISOTRETINOIN [Suspect]
     Active Substance: ISOTRETINOIN
     Indication: Acne
     Dosage: 30 MG TWICE DAILY
     Dates: start: 20231206, end: 20240220
  3. ISOTRETINOIN [Suspect]
     Active Substance: ISOTRETINOIN
     Dosage: 30 MG TWICE DAILY
     Dates: start: 20240329, end: 20240430
  4. CLARAVIS [Suspect]
     Active Substance: ISOTRETINOIN
     Indication: Acne
     Dosage: UNK
     Dates: start: 20240221, end: 20240328
  5. AQUAPHOR [Concomitant]
     Active Substance: PETROLATUM
  6. GENTLE MOISTURIZER [Concomitant]

REACTIONS (1)
  - Aggression [Recovering/Resolving]
